FAERS Safety Report 7541074-9 (Version None)
Quarter: 2011Q2

REPORT INFORMATION
  Report Type: 
  Country: None (occurrence: None)
  Receive Date: 20110610
  Receipt Date: 20110602
  Transmission Date: 20111010
  Serious: Yes (Hospitalization, Other)
  Sender: FDA-Public Use
  Company Number: JP-ROCHE-778308

PATIENT
  Sex: Male
  Weight: 67 kg

DRUGS (5)
  1. AVASTIN [Suspect]
     Indication: RECTAL CANCER
     Route: 042
     Dates: start: 20101213, end: 20110323
  2. FLUOROURACIL [Suspect]
     Indication: RECTAL CANCER
     Route: 040
     Dates: start: 20101213, end: 20110323
  3. OXALIPLATIN [Concomitant]
     Route: 041
     Dates: start: 20101213, end: 20110323
  4. FLUOROURACIL [Suspect]
     Route: 042
     Dates: start: 20101213, end: 20110323
  5. LEUCOVORIN CALCIUM [Concomitant]
     Route: 041
     Dates: start: 20101213, end: 20110323

REACTIONS (6)
  - GASTROINTESTINAL MUCOSAL NECROSIS [None]
  - GASTROOESOPHAGEAL SPHINCTER INSUFFICIENCY [None]
  - OESOPHAGEAL STENOSIS [None]
  - GASTROINTESTINAL HAEMORRHAGE [None]
  - STOMATITIS [None]
  - OESOPHAGEAL ULCER HAEMORRHAGE [None]
